FAERS Safety Report 26172230 (Version 1)
Quarter: 2025Q4

REPORT INFORMATION
  Report Type: Spontaneous
  Country: US (occurrence: US)
  Receive Date: 20251218
  Receipt Date: 20251218
  Transmission Date: 20260118
  Serious: Yes (Life-Threatening, Other)
  Sender: TEVA
  Company Number: US-TEVA-VS-3402323

PATIENT
  Sex: Female

DRUGS (6)
  1. DULOXETINE [Suspect]
     Active Substance: DULOXETINE
     Indication: Fibromyalgia
     Route: 065
  2. RANITIDINE [Concomitant]
     Active Substance: RANITIDINE
     Indication: Product used for unknown indication
     Dosage: NIGHTLY
     Route: 065
  3. GABAPENTIN [Concomitant]
     Active Substance: GABAPENTIN
     Indication: Fibromyalgia
     Route: 065
  4. DILTIAZEM [Suspect]
     Active Substance: DILTIAZEM
     Indication: Prophylaxis
     Route: 065
  5. SOTALOL [Suspect]
     Active Substance: SOTALOL
     Indication: Prophylaxis
     Route: 065
  6. HYDROCHLOROTHIAZIDE [Concomitant]
     Active Substance: HYDROCHLOROTHIAZIDE
     Indication: Hypertension
     Route: 065

REACTIONS (7)
  - Supraventricular tachycardia [Unknown]
  - Atrial fibrillation [Unknown]
  - Cyanosis [Recovered/Resolved]
  - Vasoconstriction [Recovered/Resolved]
  - Paradoxical drug reaction [Recovering/Resolving]
  - Drug ineffective [Unknown]
  - Cognitive disorder [Unknown]
